FAERS Safety Report 9855147 (Version 1)
Quarter: 2014Q1

REPORT INFORMATION
  Report Type: Spontaneous
  Country: CL (occurrence: CL)
  Receive Date: 20140130
  Receipt Date: 20140130
  Transmission Date: 20141002
  Serious: Yes (Other)
  Sender: FDA-Public Use
  Company Number: CL-JNJFOC-20140115117

PATIENT
  Age: 40 Year
  Sex: Male
  Weight: 64 kg

DRUGS (3)
  1. REMICADE [Suspect]
     Indication: CROHN^S DISEASE
     Route: 042
     Dates: start: 20130806
  2. REMICADE [Suspect]
     Indication: CROHN^S DISEASE
     Route: 042
     Dates: start: 201310
  3. ELTROMBOPAG [Concomitant]
     Route: 065

REACTIONS (3)
  - Epistaxis [Recovered/Resolved]
  - Acne [Recovered/Resolved]
  - Contusion [Recovered/Resolved]
